FAERS Safety Report 6368331-6 (Version None)
Quarter: 2009Q3

REPORT INFORMATION
  Report Type: 
  Country: None (occurrence: None)
  Receive Date: 20090909
  Receipt Date: 20090528
  Transmission Date: 20100115
  Serious: No
  Sender: FDA-Public Use
  Company Number: 000916

PATIENT
  Sex: Male
  Weight: 83.0083 kg

DRUGS (3)
  1. ROTIGOTINE [Suspect]
     Indication: PARKINSON'S DISEASE
     Dosage: (4 MG QD TRANSDERMAL)
     Route: 062
  2. CARBIDOPA [Concomitant]
  3. SYNTHROID [Concomitant]

REACTIONS (2)
  - APPLICATION SITE REACTION [None]
  - RASH [None]
